FAERS Safety Report 14006975 (Version 3)
Quarter: 2018Q4

REPORT INFORMATION
  Report Type: Spontaneous
  Country: US (occurrence: US)
  Receive Date: 20170925
  Receipt Date: 20181109
  Transmission Date: 20190204
  Serious: No
  Sender: FDA-Public Use
  Company Number: US-PFIZER INC-2017409585

PATIENT
  Age: 79 Year
  Sex: Female

DRUGS (24)
  1. LYRICA [Suspect]
     Active Substance: PREGABALIN
     Indication: SCIATICA
  2. LYRICA [Suspect]
     Active Substance: PREGABALIN
     Indication: RED BLOOD CELL SEDIMENTATION RATE INCREASED
  3. BACTROBAN [Concomitant]
     Active Substance: MUPIROCIN\MUPIROCIN CALCIUM
     Dosage: UNK, 3X/DAY (APPLY 3X/DAY TO AFFECTED AREA)
  4. LYRICA [Suspect]
     Active Substance: PREGABALIN
     Indication: VITAMIN D DEFICIENCY
  5. PERFOROMIST [Concomitant]
     Active Substance: FORMOTEROL FUMARATE DIHYDRATE
     Dosage: 20 UG, 2X/DAY (INHALE 20 MCG INTO THE LUNGS RESPIRATORY EVERY 12 (TWELVE) HOURS- 0900, 2100)
     Route: 055
  6. SLOW-MAG [Concomitant]
     Active Substance: MAGNESIUM CHLORIDE
     Dosage: 71.5 MG, DAILY TBEC
     Route: 048
  7. LYRICA [Suspect]
     Active Substance: PREGABALIN
     Indication: MYALGIA
     Dosage: 75 MG, 2X/DAY (1 PILL)
     Dates: start: 20170920
  8. ELIQUIS [Concomitant]
     Active Substance: APIXABAN
     Dosage: 5 MG, 2X/DAY
     Route: 048
  9. LYRICA [Suspect]
     Active Substance: PREGABALIN
     Indication: ESSENTIAL HYPERTENSION
  10. K-DUR [Concomitant]
     Active Substance: POTASSIUM CHLORIDE
     Dosage: 40 MEQ, DAILY
  11. LYRICA [Suspect]
     Active Substance: PREGABALIN
     Indication: AUTOIMMUNE HYPOTHYROIDISM
  12. VITAMIN D3 [Concomitant]
     Active Substance: CHOLECALCIFEROL
     Dosage: 1000 IU, DAILY
     Route: 048
  13. MYCOSTATIN [Concomitant]
     Active Substance: NYSTATIN
     Dosage: UNK, AS NEEDED
  14. KLOR-CON [Concomitant]
     Active Substance: POTASSIUM CHLORIDE
     Dosage: 40 MEQ, DAILY
  15. DIOVAN HCT [Concomitant]
     Active Substance: HYDROCHLOROTHIAZIDE\VALSARTAN
     Dosage: 1 DF, 1X/DAY (VALSARTAN: 160 MG]/ [HYDROCHLOROTHIAZIDE: 12.5 MG] (1 IN AM))
  16. LIPITOR [Concomitant]
     Active Substance: ATORVASTATIN CALCIUM
     Dosage: 80 MG, UNK
  17. CELEBREX [Concomitant]
     Active Substance: CELECOXIB
     Dosage: 200 MG, DAILY(AS 1ST LINE MUST DRINK 40-60 OZ FLUIDS WHILE ON STOP IF STOMACH UPSET OR DARK STOOL)
     Route: 048
  18. QUESTRAN [Concomitant]
     Active Substance: CHOLESTYRAMINE
     Dosage: 1 DF, 3X/DAY ((WITH SUGAR AT 1 PACKET BY MOUTH 3 (THREE) TIMES DAILY WITH MEALS),
  19. LASIX [Concomitant]
     Active Substance: FUROSEMIDE
     Dosage: 40 MG, AS NEEDED(PM DOS PRN WILL ADD K ONLY WITH 2ND DOSE)
  20. DESYREL [Concomitant]
     Active Substance: TRAZODONE HYDROCHLORIDE
     Dosage: 100 MG, 1X/DAY (EARLY IN EVENING)
  21. LYRICA [Suspect]
     Active Substance: PREGABALIN
     Indication: HYPERGAMMAGLOBULINAEMIA BENIGN MONOCLONAL
  22. LYRICA [Suspect]
     Active Substance: PREGABALIN
     Indication: BLOOD DISORDER
  23. LEVOTHYROXINE. [Concomitant]
     Active Substance: LEVOTHYROXINE
     Dosage: 200 UG, DAILY
     Route: 048
  24. PULMICORT TURBUHALER [Concomitant]
     Active Substance: BUDESONIDE
     Dosage: 0.5 MG, 2X/DAY
     Route: 045

REACTIONS (2)
  - Balance disorder [Unknown]
  - Somnolence [Unknown]
